FAERS Safety Report 4710645-7 (Version None)
Quarter: 2005Q3

REPORT INFORMATION
  Report Type: 
  Country: None (occurrence: None)
  Receive Date: 20050707
  Receipt Date: 20050617
  Transmission Date: 20060218
  Serious: Yes (Other)
  Sender: FDA-Public Use
  Company Number: GBS041015696

PATIENT
  Age: 8 Year
  Sex: Female
  Weight: 27 kg

DRUGS (4)
  1. STRATTERA [Suspect]
     Indication: ATTENTION DEFICIT/HYPERACTIVITY DISORDER
     Dosage: 40 MG DAY
     Dates: start: 20040904, end: 20040923
  2. CEFADROXIL [Concomitant]
  3. PSEUDOEPHEDRINE HYDROCHLORIDE [Concomitant]
  4. METHYLPHENIDATE HCL [Concomitant]

REACTIONS (4)
  - EMOTIONAL DISORDER [None]
  - HALLUCINATION, VISUAL [None]
  - NIGHTMARE [None]
  - THINKING ABNORMAL [None]
